FAERS Safety Report 8125877-8 (Version None)
Quarter: 2012Q1

REPORT INFORMATION
  Report Type: 
  Country: None (occurrence: None)
  Receive Date: 20120209
  Receipt Date: 20120206
  Transmission Date: 20120608
  Serious: Yes (Other)
  Sender: FDA-Public Use
  Company Number: US-PFIZER INC-2012032357

PATIENT
  Sex: Female
  Weight: 63.492 kg

DRUGS (5)
  1. LIPITOR [Suspect]
     Indication: BLOOD CHOLESTEROL INCREASED
     Dosage: 10 MG, 1X/DAY
     Route: 048
     Dates: end: 20120101
  2. METOPROLOL [Concomitant]
     Indication: CARDIAC DISORDER
     Dosage: UNK
  3. ENALAPRIL [Concomitant]
     Indication: HYPERTENSION
     Dosage: UNK
  4. LIPITOR [Suspect]
     Dosage: UNK
     Dates: start: 20120101
  5. WARFARIN [Concomitant]
     Indication: BLOOD DISORDER
     Dosage: UNK

REACTIONS (10)
  - BLOOD TRIGLYCERIDES INCREASED [None]
  - SWELLING [None]
  - MALAISE [None]
  - HEAD DISCOMFORT [None]
  - FEELING ABNORMAL [None]
  - CARDIAC DISORDER [None]
  - DIZZINESS [None]
  - OEDEMA PERIPHERAL [None]
  - ALOPECIA [None]
  - EYELID DISORDER [None]
